FAERS Safety Report 11599754 (Version 5)
Quarter: 2016Q4

REPORT INFORMATION
  Report Type: Report from Study
  Country: US (occurrence: US)
  Receive Date: 20151006
  Receipt Date: 20161226
  Transmission Date: 20170206
  Serious: No
  Sender: FDA-Public Use
  Company Number: PHEH2015US010095

PATIENT
  Age: 48 Year
  Sex: Male
  Weight: 98.42 kg

DRUGS (9)
  1. BACLOFEN. [Suspect]
     Active Substance: BACLOFEN
     Indication: MUSCLE TIGHTNESS
     Route: 065
  2. BACLOFEN. [Suspect]
     Active Substance: BACLOFEN
     Indication: MUSCLE SPASMS
  3. VITAMIN D [Concomitant]
     Active Substance: CHOLECALCIFEROL
     Indication: PRODUCT USED FOR UNKNOWN INDICATION
     Route: 065
  4. GILENYA [Suspect]
     Active Substance: FINGOLIMOD HYDROCHLORIDE
     Indication: MULTIPLE SCLEROSIS
     Dosage: 0.5 MG, QD
     Route: 048
     Dates: start: 20150430
  5. SOLU-MEDROL [Concomitant]
     Active Substance: METHYLPREDNISOLONE SODIUM SUCCINATE
     Indication: PRODUCT USED FOR UNKNOWN INDICATION
     Route: 065
  6. LYRICA [Concomitant]
     Active Substance: PREGABALIN
     Indication: PRODUCT USED FOR UNKNOWN INDICATION
     Dosage: 150 MG, BID
     Route: 065
  7. GABAPENTIN. [Concomitant]
     Active Substance: GABAPENTIN
     Indication: PRODUCT USED FOR UNKNOWN INDICATION
     Dosage: 300 MG, TID
     Route: 065
  8. VENLAFAXINE [Concomitant]
     Active Substance: VENLAFAXINE HYDROCHLORIDE
     Indication: PRODUCT USED FOR UNKNOWN INDICATION
     Dosage: 37.5 MG, QD
     Route: 065
  9. TYLENOL PM [Concomitant]
     Active Substance: ACETAMINOPHEN\DIPHENHYDRAMINE
     Indication: PRODUCT USED FOR UNKNOWN INDICATION
     Route: 065

REACTIONS (31)
  - Memory impairment [Not Recovered/Not Resolved]
  - Gait disturbance [Unknown]
  - Disturbance in attention [Unknown]
  - Anger [Unknown]
  - Gait spastic [Unknown]
  - Muscular weakness [Unknown]
  - Fatigue [Unknown]
  - Burning sensation [Not Recovered/Not Resolved]
  - Weight decreased [Unknown]
  - Hypoaesthesia [Unknown]
  - Drug ineffective [Unknown]
  - Muscle tightness [Unknown]
  - General physical health deterioration [Unknown]
  - Pain [Unknown]
  - Fall [Unknown]
  - Anxiety [Unknown]
  - Nocturia [Unknown]
  - Back pain [Not Recovered/Not Resolved]
  - Scoliosis [Not Recovered/Not Resolved]
  - Irritability [Unknown]
  - Urinary hesitation [Unknown]
  - Depression [Unknown]
  - Headache [Not Recovered/Not Resolved]
  - Sleep disorder [Not Recovered/Not Resolved]
  - Ataxia [Unknown]
  - Muscle spasms [Unknown]
  - Sleep apnoea syndrome [Unknown]
  - Sensory loss [Unknown]
  - Paraesthesia [Unknown]
  - Aphasia [Unknown]
  - Stress [Unknown]

NARRATIVE: CASE EVENT DATE: 20150430
